FAERS Safety Report 4388756-8 (Version None)
Quarter: 2004Q3

REPORT INFORMATION
  Report Type: 
  Country: None (occurrence: None)
  Receive Date: 20040701
  Receipt Date: 20040621
  Transmission Date: 20050211
  Serious: Yes (Death, Life-Threatening)
  Sender: FDA-Public Use
  Company Number: JP-GLAXOSMITHKLINE-B0336498A

PATIENT
  Age: 57 Year
  Sex: Male

DRUGS (2)
  1. ALKERAN [Suspect]
     Dosage: 8MG PER DAY
     Route: 048
     Dates: start: 20040509, end: 20040513
  2. ONCOVIN [Concomitant]
     Route: 042

REACTIONS (2)
  - DEATH [None]
  - DIARRHOEA [None]
